FAERS Safety Report 20707492 (Version 2)
Quarter: 2022Q2

REPORT INFORMATION
  Report Type: Spontaneous
  Country: BR (occurrence: BR)
  Receive Date: 20220413
  Receipt Date: 20220426
  Transmission Date: 20220721
  Serious: Yes (Hospitalization)
  Sender: FDA-Public Use
  Company Number: BR-TEVA BRAZIL-2022-BR-2025896

PATIENT
  Age: 12 Year
  Sex: Female

DRUGS (1)
  1. METHOTREXATE [Suspect]
     Active Substance: METHOTREXATE
     Indication: Erythrodermic psoriasis
     Dosage: DOSE 15 MG PER WEEK, WHICH WAS STARTED ONE YEAR AND FIVE MONTHS BEFORE
     Route: 065

REACTIONS (3)
  - Varicella [Recovering/Resolving]
  - Periorbital cellulitis [Recovering/Resolving]
  - Febrile neutropenia [Recovering/Resolving]
